FAERS Safety Report 17225232 (Version 1)
Quarter: 2020Q1

REPORT INFORMATION
  Report Type: Spontaneous
  Country: US (occurrence: US)
  Receive Date: 20200101
  Receipt Date: 20200101
  Transmission Date: 20200409
  Serious: Yes (Disabling)
  Sender: FDA-Public Use
  Company Number: None

PATIENT
  Age: 28 Year
  Sex: Female
  Weight: 92.25 kg

DRUGS (1)
  1. DUPIXENT [Suspect]
     Active Substance: DUPILUMAB
     Indication: UPPER RESPIRATORY TRACT INFECTION
     Dates: start: 20191227, end: 20191230

REACTIONS (4)
  - Stomatitis [None]
  - Dysphagia [None]
  - Cheilitis [None]
  - Glossodynia [None]

NARRATIVE: CASE EVENT DATE: 20200101
